FAERS Safety Report 18003715 (Version 2)
Quarter: 2020Q3

REPORT INFORMATION
  Report Type: Spontaneous
  Country: IT (occurrence: IT)
  Receive Date: 20200710
  Receipt Date: 20200710
  Transmission Date: 20201103
  Serious: Yes (Death)
  Sender: FDA-Public Use
  Company Number: IT-ROCHE-2638434

PATIENT
  Sex: Male

DRUGS (10)
  1. VEMURAFENIB. [Suspect]
     Active Substance: VEMURAFENIB
     Indication: HAIRY CELL LEUKAEMIA
     Route: 065
  2. AMIKACINA [AMIKACIN] [Concomitant]
     Active Substance: AMIKACIN
  3. INTERFERON ALFA?2B [Concomitant]
     Active Substance: INTERFERON ALFA-2B
     Dosage: 3 ADMIN/WEEK
     Route: 065
     Dates: start: 202003, end: 202004
  4. MERREM [Concomitant]
     Active Substance: MEROPENEM
  5. TYGACIL [Concomitant]
     Active Substance: TIGECYCLINE
  6. CLADRIBINE. [Concomitant]
     Active Substance: CLADRIBINE
     Route: 065
     Dates: start: 20191031
  7. ZITROMAX [Concomitant]
     Active Substance: AZITHROMYCIN
  8. MEFOXIN [Concomitant]
     Active Substance: CEFOXITIN SODIUM
  9. IMIPENEM [Concomitant]
     Active Substance: IMIPENEM
  10. AZITROMYCINE [Concomitant]
     Active Substance: AZITHROMYCIN

REACTIONS (3)
  - Off label use [Unknown]
  - Death [Fatal]
  - Product use in unapproved indication [Unknown]
